FAERS Safety Report 24829017 (Version 2)
Quarter: 2025Q2

REPORT INFORMATION
  Report Type: Report from Study
  Country: US (occurrence: US)
  Receive Date: 20250110
  Receipt Date: 20250531
  Transmission Date: 20250716
  Serious: Yes (Hospitalization, Other)
  Sender: STEMLINE THERAPEUTICS
  Company Number: US-Stemline Therapeutics, Inc.-2024ST003844

PATIENT

DRUGS (2)
  1. ORSERDU [Suspect]
     Active Substance: ELACESTRANT
     Indication: Bone cancer
     Dosage: 345 MG, DAILY
     Route: 048
     Dates: start: 202405
  2. ORSERDU [Suspect]
     Active Substance: ELACESTRANT
     Indication: Breast cancer female
     Dosage: 345 MG, DAILY
     Route: 048
     Dates: start: 20240606

REACTIONS (11)
  - Choking [Unknown]
  - Foreign body in throat [Unknown]
  - Gait disturbance [Recovering/Resolving]
  - Gout [Not Recovered/Not Resolved]
  - Pain in extremity [Not Recovered/Not Resolved]
  - Diarrhoea [Unknown]
  - Rash [Unknown]
  - Nausea [Unknown]
  - Product size issue [Unknown]
  - Product use complaint [Unknown]
  - Underdose [Unknown]

NARRATIVE: CASE EVENT DATE: 20240601
